FAERS Safety Report 15242138 (Version 4)
Quarter: 2019Q4

REPORT INFORMATION
  Report Type: Spontaneous
  Country: CA (occurrence: CA)
  Receive Date: 20180806
  Receipt Date: 20191002
  Transmission Date: 20200122
  Serious: Yes (Hospitalization, Other)
  Sender: FDA-Public Use
  Company Number: CA-ROCHE-2164238

PATIENT
  Age: 88 Year
  Sex: Male

DRUGS (6)
  1. THEO-DUR [Concomitant]
     Active Substance: THEOPHYLLINE ANHYDROUS
     Indication: PRODUCT USED FOR UNKNOWN INDICATION
     Dosage: 1 DF, QD
     Route: 065
     Dates: start: 20110511
  2. SEEBRI BREEZHALER [Concomitant]
     Active Substance: GLYCOPYRROLATE
     Indication: PRODUCT USED FOR UNKNOWN INDICATION
     Dosage: 1 DF, QD
     Route: 065
     Dates: start: 20151001
  3. PREDNISONE. [Suspect]
     Active Substance: PREDNISONE
     Indication: PNEUMONIA
     Dosage: 50MG PER DAY FOR 3 DAYS THEN TAPERED TO 45 MG FOR 3 DAYS
     Route: 065
  4. XOLAIR [Suspect]
     Active Substance: OMALIZUMAB
     Indication: ASTHMA
     Route: 058
     Dates: start: 20160805
  5. ZENHALE [Concomitant]
     Active Substance: FORMOTEROL FUMARATE\MOMETASONE FUROATE
     Indication: PRODUCT USED FOR UNKNOWN INDICATION
     Dosage: 2 DF, BID
     Route: 065
     Dates: start: 20160412
  6. HYDROCORTISONE. [Concomitant]
     Active Substance: HYDROCORTISONE
     Dosage: Q3W
     Route: 065

REACTIONS (16)
  - Breath sounds [Unknown]
  - Chest discomfort [Unknown]
  - Lung diffusion test decreased [Unknown]
  - Addison^s disease [Unknown]
  - Pneumonia [Unknown]
  - Cough [Unknown]
  - Oxygen saturation decreased [Unknown]
  - Wheezing [Unknown]
  - Rales [Unknown]
  - Asthenia [Unknown]
  - Forced expiratory volume decreased [Not Recovered/Not Resolved]
  - Tachypnoea [Unknown]
  - Chronic obstructive pulmonary disease [Unknown]
  - Blood pressure increased [Unknown]
  - Dyspnoea exertional [Unknown]
  - Joint swelling [Unknown]

NARRATIVE: CASE EVENT DATE: 20180816
